FAERS Safety Report 8333611-1 (Version None)
Quarter: 2012Q2

REPORT INFORMATION
  Report Type: 
  Country: None (occurrence: None)
  Receive Date: 20120503
  Receipt Date: 20101202
  Transmission Date: 20120825
  Serious: No
  Sender: FDA-Public Use
  Company Number: US-TEVA-2010006276

PATIENT
  Age: 75 Year
  Sex: Male
  Weight: 79.45 kg

DRUGS (3)
  1. NUVIGIL [Suspect]
     Indication: PARKINSON'S DISEASE
  2. SINEMET [Concomitant]
     Dates: start: 20080101
  3. NUVIGIL [Suspect]
     Indication: SLEEP APNOEA SYNDROME
     Dosage: 150 MILLIGRAM;
     Route: 048
     Dates: start: 20101101, end: 20101101

REACTIONS (1)
  - INSOMNIA [None]
